FAERS Safety Report 25523481 (Version 1)
Quarter: 2025Q3

REPORT INFORMATION
  Report Type: Spontaneous
  Country: CN (occurrence: CN)
  Receive Date: 20250707
  Receipt Date: 20250707
  Transmission Date: 20251020
  Serious: Yes (Other)
  Sender: BAXTER
  Company Number: None

PATIENT
  Age: 62 Year
  Sex: Female
  Weight: 53 kg

DRUGS (6)
  1. CYCLOPHOSPHAMIDE [Suspect]
     Active Substance: CYCLOPHOSPHAMIDE
     Indication: Breast cancer female
     Dosage: 900 MG, QD
     Route: 041
     Dates: start: 20250620, end: 20250620
  2. SODIUM CHLORIDE [Suspect]
     Active Substance: SODIUM CHLORIDE
     Dosage: 0.9% INJECTION, 100 ML, QD WITH CYCLOPHOSPHAMIDE
     Route: 041
     Dates: start: 20250620, end: 20250620
  3. DEXTROSE [Suspect]
     Active Substance: DEXTROSE MONOHYDRATE
     Dosage: 5% INJECTION, 250 ML, QD WITH DOCETAXEL
     Route: 041
     Dates: start: 20250620, end: 20250620
  4. DOCETAXEL [Suspect]
     Active Substance: DOCETAXEL
     Indication: Breast cancer female
     Dosage: 110 MG, QD
     Route: 041
     Dates: start: 20250620, end: 20250620
  5. ANF-RHO [Concomitant]
     Active Substance: ANF-RHO
     Indication: Neutropenia
     Route: 058
  6. ANF-RHO [Concomitant]
     Active Substance: ANF-RHO
     Indication: Prophylaxis

REACTIONS (1)
  - Myelosuppression [Recovering/Resolving]

NARRATIVE: CASE EVENT DATE: 20250626
